FAERS Safety Report 11224594 (Version 3)
Quarter: 2015Q3

REPORT INFORMATION
  Report Type: Spontaneous
  Country: GB (occurrence: GB)
  Receive Date: 20150629
  Receipt Date: 20150729
  Transmission Date: 20151125
  Serious: Yes (Hospitalization, Other)
  Sender: FDA-Public Use
  Company Number: GB-ALLERGAN-1511933US

PATIENT
  Age: 67 Year
  Sex: Female

DRUGS (7)
  1. QUININE SULPHATE [Concomitant]
     Active Substance: QUININE SULFATE
     Indication: RESTLESS LEGS SYNDROME
     Dosage: 300 MG, QD
     Route: 048
  2. OMEPRAZOL [Concomitant]
     Active Substance: OMEPRAZOLE
     Indication: HIATUS HERNIA
     Dosage: 20 MG, BID
     Route: 048
  3. IBUPROFEN. [Concomitant]
     Active Substance: IBUPROFEN
     Indication: PAIN
     Dosage: UNK, TID
     Route: 061
  4. BOTOX [Suspect]
     Active Substance: ONABOTULINUMTOXINA
     Indication: TORTICOLLIS
     Dosage: UNK
     Route: 030
     Dates: start: 201109, end: 201109
  5. PROPRANOLOL [Concomitant]
     Active Substance: PROPRANOLOL\PROPRANOLOL HYDROCHLORIDE
     Indication: ANXIETY
     Dosage: 40 MG, TID
     Route: 048
  6. ATORVASTATIN [Concomitant]
     Active Substance: ATORVASTATIN
     Indication: BLOOD CHOLESTEROL INCREASED
     Dosage: 80 MG, QD
     Route: 048
  7. BOTOX [Suspect]
     Active Substance: ONABOTULINUMTOXINA
     Indication: DYSTONIA
     Dosage: UNK, SINGLE
     Route: 030
     Dates: start: 20150608, end: 20150608

REACTIONS (5)
  - Transient ischaemic attack [Recovered/Resolved with Sequelae]
  - Dysphagia [Recovered/Resolved with Sequelae]
  - Dysplasia [Unknown]
  - VIIth nerve paralysis [Recovered/Resolved with Sequelae]
  - Facial paresis [Unknown]

NARRATIVE: CASE EVENT DATE: 20150621
